FAERS Safety Report 12452597 (Version 1)
Quarter: 2016Q2

REPORT INFORMATION
  Report Type: Report from Study
  Country: TW (occurrence: TW)
  Receive Date: 20160609
  Receipt Date: 20160609
  Transmission Date: 20160815
  Serious: Yes (Other)
  Sender: FDA-Public Use
  Company Number: TW-JNJFOC-20160529170

PATIENT
  Age: 55 Year
  Sex: Male
  Weight: 73 kg

DRUGS (4)
  1. SALAZINE [Concomitant]
     Active Substance: SULFASALAZINE
     Indication: PSORIASIS
     Route: 048
     Dates: start: 20050907
  2. STELARA [Suspect]
     Active Substance: USTEKINUMAB
     Indication: PSORIASIS
     Route: 058
     Dates: start: 20130206, end: 20160126
  3. SANDIMMUN [Concomitant]
     Active Substance: CYCLOSPORINE
     Indication: PSORIASIS
     Route: 048
     Dates: start: 20151102
  4. PREDNISOLONE. [Concomitant]
     Active Substance: PREDNISOLONE
     Indication: PSORIASIS
     Route: 048
     Dates: start: 20050713

REACTIONS (1)
  - Hepatic cirrhosis [Not Recovered/Not Resolved]

NARRATIVE: CASE EVENT DATE: 20160203
